FAERS Safety Report 6495852-8 (Version None)
Quarter: 2009Q4

REPORT INFORMATION
  Report Type: 
  Country: None (occurrence: None)
  Receive Date: 20091214
  Receipt Date: 20091001
  Transmission Date: 20100525
  Serious: No
  Sender: FDA-Public Use
  Company Number: US-BRISTOL-MYERS SQUIBB COMPANY-14749246

PATIENT
  Age: 40 Year
  Sex: Female

DRUGS (3)
  1. ABILIFY [Suspect]
     Indication: MAJOR DEPRESSION
     Route: 048
     Dates: start: 20090722, end: 20090813
  2. ANTIDEPRESSANT [Suspect]
     Indication: MAJOR DEPRESSION
  3. ZYPREXA [Suspect]

REACTIONS (2)
  - NIGHTMARE [None]
  - WEIGHT INCREASED [None]
